FAERS Safety Report 7948775-9 (Version None)
Quarter: 2011Q4

REPORT INFORMATION
  Report Type: 
  Country: None (occurrence: None)
  Receive Date: 20111130
  Receipt Date: 20111121
  Transmission Date: 20120403
  Serious: Yes (Other)
  Sender: FDA-Public Use
  Company Number: US-NOVOPROD-335172

PATIENT

DRUGS (7)
  1. VICTOZA [Suspect]
     Indication: TYPE 2 DIABETES MELLITUS
     Dosage: 1.8 MG, QD
     Route: 058
     Dates: start: 20110801, end: 20110904
  2. CIALIS [Concomitant]
     Indication: ERECTILE DYSFUNCTION
     Dosage: 5 MG, PRN
     Route: 065
  3. VICTOZA [Suspect]
     Dosage: .6 MG, QD
     Route: 058
     Dates: start: 20110701, end: 20110701
  4. LIPITOR [Concomitant]
     Dosage: 20 MG, QD
     Route: 065
  5. LISINOPRIL [Concomitant]
     Indication: HYPERTENSION
     Dosage: 5 MG, QD
     Route: 065
  6. KOMBIGLYZE XR [Concomitant]
     Indication: TYPE 2 DIABETES MELLITUS
     Dosage: 2.5/1000, BID
     Route: 065
     Dates: end: 20110915
  7. VICTOZA [Suspect]
     Dosage: 1.2 MG, QD
     Route: 058
     Dates: start: 20110701, end: 20110801

REACTIONS (5)
  - PANCREATITIS [None]
  - DIARRHOEA [None]
  - NAUSEA [None]
  - ADVERSE EVENT [None]
  - VOMITING [None]
